FAERS Safety Report 20481337 (Version 2)
Quarter: 2025Q2

REPORT INFORMATION
  Report Type: Spontaneous
  Country: US (occurrence: US)
  Receive Date: 20220216
  Receipt Date: 20250621
  Transmission Date: 20250716
  Serious: Yes (Other)
  Sender: AUROBINDO
  Company Number: US-MYLANLABS-2022M1012826

PATIENT
  Age: 72 Year
  Sex: Male

DRUGS (12)
  1. HYDROXYCHLOROQUINE [Suspect]
     Active Substance: HYDROXYCHLOROQUINE
     Indication: Lymphoid tissue hyperplasia
     Route: 065
  2. HYDROXYCHLOROQUINE [Suspect]
     Active Substance: HYDROXYCHLOROQUINE
     Indication: Skin hyperplasia
  3. METHOTREXATE [Suspect]
     Active Substance: METHOTREXATE
     Indication: Lymphoid tissue hyperplasia
     Dosage: 20 MILLIGRAM, EVERY WEEK
     Route: 048
  4. METHOTREXATE [Suspect]
     Active Substance: METHOTREXATE
     Indication: Skin hyperplasia
  5. PREDNISONE [Suspect]
     Active Substance: PREDNISONE
     Indication: Lymphoid tissue hyperplasia
     Route: 048
  6. PREDNISONE [Suspect]
     Active Substance: PREDNISONE
     Indication: Lymphoid tissue hyperplasia
     Route: 048
  7. PREDNISONE [Suspect]
     Active Substance: PREDNISONE
     Indication: Skin hyperplasia
  8. DOXYCYCLINE [Suspect]
     Active Substance: DOXYCYCLINE
     Indication: Lymphoid tissue hyperplasia
     Route: 065
  9. DOXYCYCLINE [Suspect]
     Active Substance: DOXYCYCLINE
     Indication: Skin hyperplasia
  10. NIACINAMIDE [Suspect]
     Active Substance: NIACINAMIDE
     Indication: Lymphoid tissue hyperplasia
     Route: 065
  11. NIACINAMIDE [Suspect]
     Active Substance: NIACINAMIDE
     Indication: Skin hyperplasia
  12. RITUXIMAB [Concomitant]
     Active Substance: RITUXIMAB
     Indication: Skin lesion
     Route: 065

REACTIONS (2)
  - Drug ineffective [Unknown]
  - Off label use [Unknown]
